FAERS Safety Report 18388646 (Version 3)
Quarter: 2020Q4

REPORT INFORMATION
  Report Type: Report from Study
  Country: US (occurrence: US)
  Receive Date: 20201015
  Receipt Date: 20201222
  Transmission Date: 20210114
  Serious: No
  Sender: FDA-Public Use
  Company Number: US-ASTRAZENECA-2020SF30484

PATIENT
  Sex: Female

DRUGS (1)
  1. SEROQUEL XR [Suspect]
     Active Substance: QUETIAPINE FUMARATE
     Dosage: 400 MG 3 HOURS BEFORE BEDTIME ORAL.
     Route: 048

REACTIONS (6)
  - Urticaria [Not Recovered/Not Resolved]
  - Lactose intolerance [Unknown]
  - Diarrhoea [Unknown]
  - Hallucination, auditory [Not Recovered/Not Resolved]
  - Acne cystic [Not Recovered/Not Resolved]
  - Abdominal distension [Not Recovered/Not Resolved]

NARRATIVE: CASE EVENT DATE: 202008
